APPROVED DRUG PRODUCT: BENTYL
Active Ingredient: DICYCLOMINE HYDROCHLORIDE
Strength: 10MG/ML
Dosage Form/Route: INJECTABLE;INJECTION
Application: N008370 | Product #001
Applicant: ABBVIE INC
Approved: Oct 15, 1984 | RLD: Yes | RS: No | Type: DISCN